FAERS Safety Report 4705417-3 (Version None)
Quarter: 2005Q3

REPORT INFORMATION
  Report Type: 
  Country: None (occurrence: None)
  Receive Date: 20050701
  Receipt Date: 20041203
  Transmission Date: 20060218
  Serious: Yes (Other)
  Sender: FDA-Public Use
  Company Number: GB-GLAXOSMITHKLINE-B0361228A

PATIENT
  Sex: Female

DRUGS (2)
  1. PAROXETINE HYDROCHLORIDE [Suspect]
     Route: 065
  2. INSULIN [Concomitant]
     Route: 065

REACTIONS (8)
  - APATHY [None]
  - DEPRESSED MOOD [None]
  - DISTURBANCE IN ATTENTION [None]
  - ILL-DEFINED DISORDER [None]
  - INITIAL INSOMNIA [None]
  - INTENTIONAL SELF-INJURY [None]
  - MALAISE [None]
  - SUICIDAL IDEATION [None]
